FAERS Safety Report 9379880 (Version 4)
Quarter: 2013Q3

REPORT INFORMATION
  Report Type: Spontaneous
  Country: US (occurrence: US)
  Receive Date: 20130702
  Receipt Date: 20130802
  Transmission Date: 20140515
  Serious: Yes (Hospitalization)
  Sender: FDA-Public Use
  Company Number: US-GILEAD-2013-0078127

PATIENT
  Sex: Female

DRUGS (4)
  1. LETAIRIS [Suspect]
     Indication: PULMONARY HYPERTENSION
     Dosage: 10 MG, QD
     Dates: start: 20121120
  2. LETAIRIS [Suspect]
     Indication: ATRIAL SEPTAL DEFECT
  3. ADCIRCA [Concomitant]
  4. EPOPROSTENOL [Concomitant]

REACTIONS (2)
  - Pulmonary arterial hypertension [Unknown]
  - Oxygen saturation decreased [Unknown]
